FAERS Safety Report 9157251 (Version 1)
Quarter: 2013Q1

REPORT INFORMATION
  Report Type: Spontaneous
  Country: US (occurrence: None)
  Receive Date: 20130308
  Receipt Date: 20130308
  Transmission Date: 20140127
  Serious: No
  Sender: FDA-Public Use
  Company Number: None

PATIENT
  Age: 65 Year
  Sex: Male
  Weight: 74.84 kg

DRUGS (1)
  1. BECLOMETHASONE DIPROPIONATE [Suspect]
     Dosage: 2 PUFFS 2X DAILY MOUTH
     Route: 048
     Dates: start: 20130217

REACTIONS (3)
  - Oropharyngeal pain [None]
  - Cough [None]
  - Headache [None]
